FAERS Safety Report 5420792-2 (Version None)
Quarter: 2007Q3

REPORT INFORMATION
  Report Type: 
  Country: None (occurrence: None)
  Receive Date: 20070821
  Receipt Date: 20070808
  Transmission Date: 20080115
  Serious: Yes (Hospitalization)
  Sender: FDA-Public Use
  Company Number: FR-BAYER-200710480BFR

PATIENT
  Age: 19 Year
  Sex: Male

DRUGS (2)
  1. CIPROFLOXACIN HCL [Suspect]
     Indication: SALMONELLOSIS
     Dosage: TOTAL DAILY DOSE: 800 MG  UNIT DOSE: 400 MG
     Route: 042
     Dates: start: 20070712, end: 20070715
  2. PRIMPERAN INJ [Suspect]
     Indication: SALMONELLOSIS
     Dosage: UNIT DOSE: 10 MG
     Route: 042
     Dates: start: 20070712, end: 20070713

REACTIONS (5)
  - BACK PAIN [None]
  - HALLUCINATION [None]
  - INCOHERENT [None]
  - MUSCLE CONTRACTURE [None]
  - TORTICOLLIS [None]
